FAERS Safety Report 22839537 (Version 7)
Quarter: 2024Q3

REPORT INFORMATION
  Report Type: Report from Study
  Country: US (occurrence: US)
  Receive Date: 20230818
  Receipt Date: 20240712
  Transmission Date: 20241017
  Serious: Yes (Other)
  Sender: TAKEDA
  Company Number: US-TAKEDA-2023TUS066729

PATIENT
  Age: 73 Year
  Sex: Male

DRUGS (2)
  1. HUMAN IMMUNOGLOBULIN G [Suspect]
     Active Substance: HUMAN IMMUNOGLOBULIN G
     Indication: Immunodeficiency common variable
     Dosage: UNK
     Route: 042
  2. HUMAN IMMUNOGLOBULIN G [Suspect]
     Active Substance: HUMAN IMMUNOGLOBULIN G
     Indication: Primary immunodeficiency syndrome
     Dosage: UNK, MONTHLY
     Route: 042

REACTIONS (15)
  - Cutaneous vasculitis [Unknown]
  - Interstitial lung disease [Unknown]
  - Fatigue [Not Recovered/Not Resolved]
  - Pulmonary mass [Unknown]
  - Postural orthostatic tachycardia syndrome [Unknown]
  - Incontinence [Unknown]
  - Nervous system disorder [Unknown]
  - COVID-19 [Unknown]
  - Sleep disorder [Not Recovered/Not Resolved]
  - Poor quality sleep [Not Recovered/Not Resolved]
  - Somnolence [Unknown]
  - Abdominal distension [Unknown]
  - Insomnia [Unknown]
  - Cough [Unknown]
  - Headache [Unknown]

NARRATIVE: CASE EVENT DATE: 20240710
